FAERS Safety Report 23659130 (Version 1)
Quarter: 2024Q1

REPORT INFORMATION
  Report Type: Spontaneous
  Country: US (occurrence: US)
  Receive Date: 20240321
  Receipt Date: 20240321
  Transmission Date: 20240409
  Serious: Yes (Hospitalization, Other)
  Sender: FDA-Public Use
  Company Number: US-ANIPHARMA-2024-US-015317

PATIENT
  Age: 62 Year
  Sex: Male
  Weight: 132 kg

DRUGS (9)
  1. CORTICOTROPIN [Suspect]
     Active Substance: CORTICOTROPIN
     Indication: Nephrotic syndrome
     Dosage: 80 UNITS SUBCUTANEOUS TWICE A WEEK
     Route: 058
     Dates: start: 20240214
  2. OMEPRAZOLE [Concomitant]
     Active Substance: OMEPRAZOLE
  3. METFORMIN ER GASTRIC [Concomitant]
  4. ATORVASTATIN CALCIUM [Concomitant]
     Active Substance: ATORVASTATIN CALCIUM
  5. LANTUS [Concomitant]
     Active Substance: INSULIN GLARGINE
  6. HUMALOG [Concomitant]
     Active Substance: INSULIN LISPRO
  7. CITALOPRAM [Concomitant]
     Active Substance: CITALOPRAM\CITALOPRAM HYDROBROMIDE
  8. PREDNISONE [Concomitant]
     Active Substance: PREDNISONE
  9. MULTIVITAMINS TABLET [Concomitant]

REACTIONS (3)
  - Blood glucose increased [Recovering/Resolving]
  - Loss of consciousness [Recovered/Resolved]
  - Fall [Recovered/Resolved]

NARRATIVE: CASE EVENT DATE: 20240303
